FAERS Safety Report 10042267 (Version 2)
Quarter: 2014Q2

REPORT INFORMATION
  Report Type: Spontaneous
  Country: IT (occurrence: IT)
  Receive Date: 20140327
  Receipt Date: 20140515
  Transmission Date: 20141212
  Serious: Yes (Hospitalization)
  Sender: FDA-Public Use
  Company Number: IT-ACTAVIS-2014-05589

PATIENT
  Age: 90 Year
  Sex: Female

DRUGS (3)
  1. LORMETAZEPAM (UNKNOWN) [Suspect]
     Indication: COGNITIVE DISORDER
     Dosage: 2.5 MG, DAILY
     Route: 048
     Dates: start: 20130816, end: 20130916
  2. LORMETAZEPAM (UNKNOWN) [Suspect]
     Indication: ABNORMAL BEHAVIOUR
  3. QUETIAPINE (UNKNOWN) [Suspect]
     Indication: COGNITIVE DISORDER
     Dosage: 2.5 MG, DAILY
     Route: 048

REACTIONS (1)
  - Sopor [Recovering/Resolving]
